FAERS Safety Report 14778382 (Version 5)
Quarter: 2018Q3

REPORT INFORMATION
  Report Type: Spontaneous
  Country: US (occurrence: US)
  Receive Date: 20180419
  Receipt Date: 20180823
  Transmission Date: 20181010
  Serious: No
  Sender: FDA-Public Use
  Company Number: US-BIOGEN-2018BI00552483

PATIENT
  Sex: Female

DRUGS (12)
  1. TYSABRI [Suspect]
     Active Substance: NATALIZUMAB
     Route: 042
     Dates: start: 20160914
  2. TYSABRI [Suspect]
     Active Substance: NATALIZUMAB
     Route: 042
  3. AMPYRA [Concomitant]
     Active Substance: DALFAMPRIDINE
     Route: 065
     Dates: start: 20160804
  4. TYSABRI [Suspect]
     Active Substance: NATALIZUMAB
     Route: 042
     Dates: start: 20160915
  5. BOTOX [Concomitant]
     Active Substance: ONABOTULINUMTOXINA
     Indication: PRODUCT USED FOR UNKNOWN INDICATION
     Route: 065
  6. AMPYRA [Concomitant]
     Active Substance: DALFAMPRIDINE
     Indication: GAIT DISTURBANCE
     Route: 065
     Dates: start: 201608
  7. AMPYRA [Concomitant]
     Active Substance: DALFAMPRIDINE
     Route: 065
     Dates: start: 201608
  8. TYSABRI [Suspect]
     Active Substance: NATALIZUMAB
     Indication: MULTIPLE SCLEROSIS
     Route: 042
     Dates: start: 201609
  9. TIZANIDINE. [Concomitant]
     Active Substance: TIZANIDINE
     Indication: PRODUCT USED FOR UNKNOWN INDICATION
     Route: 065
  10. REBIF [Concomitant]
     Active Substance: INTERFERON BETA-1A
     Indication: PRODUCT USED FOR UNKNOWN INDICATION
     Route: 065
  11. ALEVE [Concomitant]
     Active Substance: NAPROXEN SODIUM
     Indication: PRODUCT USED FOR UNKNOWN INDICATION
     Route: 065
  12. AMPYRA [Concomitant]
     Active Substance: DALFAMPRIDINE
     Route: 065
     Dates: start: 201608

REACTIONS (3)
  - Mobility decreased [Not Recovered/Not Resolved]
  - Fall [Recovered/Resolved]
  - Asthenia [Not Recovered/Not Resolved]
